FAERS Safety Report 25919859 (Version 1)
Quarter: 2025Q4

REPORT INFORMATION
  Report Type: Spontaneous
  Country: US (occurrence: None)
  Receive Date: 20251014
  Receipt Date: 20251014
  Transmission Date: 20260118
  Serious: Yes (Disabling, Other)
  Sender: FDA-CTU
  Company Number: None

PATIENT
  Age: 73 Year
  Sex: Female
  Weight: 65.25 kg

DRUGS (10)
  1. RECLAST [Suspect]
     Active Substance: ZOLEDRONIC ACID
     Indication: Bone disorder
     Dosage: OTHER QUANTITY : 1 INJECTION(S);?OTHER ROUTE : IV INJECTION;?
     Route: 050
  2. ADDERALL [Concomitant]
     Active Substance: AMPHETAMINE ASPARTATE\AMPHETAMINE SULFATE\DEXTROAMPHETAMINE SACCHARATE\DEXTROAMPHETAMINE SULFATE
  3. TRAZODONE [Concomitant]
     Active Substance: TRAZODONE HYDROCHLORIDE
  4. PROTONIX [Concomitant]
     Active Substance: PANTOPRAZOLE SODIUM
  5. OXYCODONE [Concomitant]
     Active Substance: OXYCODONE
  6. VITAMIN C [Concomitant]
     Active Substance: ASCORBIC ACID
  7. VITAMIN D3 [Concomitant]
     Active Substance: CHOLECALCIFEROL
  8. CALCIUM [Concomitant]
     Active Substance: CALCIUM
  9. DIETARY SUPPLEMENT\HERBALS\MILK THISTLE [Concomitant]
     Active Substance: MILK THISTLE
  10. POTASSIUM [Concomitant]
     Active Substance: POTASSIUM

REACTIONS (15)
  - Wrong product administered [None]
  - Drug monitoring procedure not performed [None]
  - Pain [None]
  - Screaming [None]
  - Eye irritation [None]
  - Arthritis [None]
  - Hip arthroplasty [None]
  - Joint swelling [None]
  - Peripheral swelling [None]
  - Alopecia [None]
  - Renal impairment [None]
  - Dialysis [None]
  - Dehydration [None]
  - Hypoaesthesia [None]
  - Paraesthesia [None]

NARRATIVE: CASE EVENT DATE: 20240520
